FAERS Safety Report 21968001 (Version 1)
Quarter: 2023Q1

REPORT INFORMATION
  Report Type: Spontaneous
  Country: US (occurrence: US)
  Receive Date: 20230208
  Receipt Date: 20230208
  Transmission Date: 20230418
  Serious: No
  Sender: FDA-Public Use
  Company Number: US-TRAVERE-2022TVT00518

PATIENT
  Age: 51 Year
  Sex: Female

DRUGS (5)
  1. CHOLIC ACID [Suspect]
     Active Substance: CHOLIC ACID
     Indication: Metabolic disorder
     Dosage: 250 MG / 2 BID
     Route: 048
     Dates: start: 20200627
  2. LORAZEPAM [Concomitant]
     Active Substance: LORAZEPAM
  3. Multivitamin Adult [Concomitant]
  4. MINERALS\VITAMINS [Concomitant]
     Active Substance: MINERALS\VITAMINS
  5. CHOLECALCIFEROL [Concomitant]
     Active Substance: CHOLECALCIFEROL

REACTIONS (2)
  - Frequent bowel movements [Unknown]
  - Diarrhoea [Unknown]

NARRATIVE: CASE EVENT DATE: 20220831
